FAERS Safety Report 7915832-2 (Version None)
Quarter: 2011Q4

REPORT INFORMATION
  Report Type: 
  Country: None (occurrence: None)
  Receive Date: 20111115
  Receipt Date: 20111109
  Transmission Date: 20120403
  Serious: Yes (Other)
  Sender: FDA-Public Use
  Company Number: US-PFIZER INC-2011240120

PATIENT
  Sex: Male

DRUGS (3)
  1. COLLAGENASE CLOSTRIDIUM HISTOLYTICUM [Suspect]
     Indication: DUPUYTREN'S CONTRACTURE
     Dosage: 1IN 1 DAY
     Route: 026
     Dates: start: 20101228, end: 20101228
  2. COLLAGENASE CLOSTRIDIUM HISTOLYTICUM [Suspect]
     Dosage: 0.58MG, 1 IN 1 DAY
     Route: 026
     Dates: start: 20110920, end: 20110920
  3. LIDOCAINE HYDROCHLORIDE [Suspect]
     Dosage: UNK
     Route: 026
     Dates: start: 20110921, end: 20110921

REACTIONS (7)
  - EPIDERMOLYSIS [None]
  - LACERATION [None]
  - INFECTION [None]
  - PAIN IN EXTREMITY [None]
  - ECCHYMOSIS [None]
  - SWELLING [None]
  - BLISTER [None]
